FAERS Safety Report 11941745 (Version 6)
Quarter: 2016Q2

REPORT INFORMATION
  Report Type: Report from Study
  Country: EE (occurrence: EE)
  Receive Date: 20160123
  Receipt Date: 20160415
  Transmission Date: 20160815
  Serious: Yes (Other)
  Sender: FDA-Public Use
  Company Number: EE-AMGEN-ESTSP2016007221

PATIENT
  Age: 73 Year
  Sex: Female

DRUGS (3)
  1. DENOSUMAB [Suspect]
     Active Substance: DENOSUMAB
     Indication: OSTEOPOROSIS POSTMENOPAUSAL
     Dosage: UNK
     Route: 058
     Dates: start: 20041008, end: 20140416
  2. VALSACOR [Concomitant]
     Active Substance: VALSARTAN
     Dosage: 40 MG, QD
     Route: 048
     Dates: start: 20110803
  3. LACIPIL [Concomitant]
     Active Substance: LACIDIPINE
     Dosage: 4 MG, QD
     Route: 048
     Dates: start: 20140325

REACTIONS (2)
  - Lumbar vertebral fracture [Recovered/Resolved]
  - Thoracic vertebral fracture [Unknown]

NARRATIVE: CASE EVENT DATE: 20141220
